FAERS Safety Report 11427513 (Version 1)
Quarter: 2015Q3

REPORT INFORMATION
  Report Type: Spontaneous
  Country: US (occurrence: US)
  Receive Date: 20150827
  Receipt Date: 20150827
  Transmission Date: 20151125
  Serious: No
  Sender: FDA-Public Use
  Company Number: US-SA-2015SA040733

PATIENT
  Age: 76 Year
  Sex: Female
  Weight: 58.96 kg

DRUGS (13)
  1. NORMAL SALINE [Concomitant]
     Active Substance: SODIUM CHLORIDE
  2. EPIPEN [Concomitant]
     Active Substance: EPINEPHRINE
  3. ASPIRIN. [Concomitant]
     Active Substance: ASPIRIN
  4. LEVOTHROID [Concomitant]
     Active Substance: LEVOTHYROXINE SODIUM
  5. VITAMIN D [Concomitant]
     Active Substance: CHOLECALCIFEROL
  6. LASIX [Concomitant]
     Active Substance: FUROSEMIDE
  7. WARFARIN [Concomitant]
     Active Substance: WARFARIN
  8. FABRAZYME [Suspect]
     Active Substance: AGALSIDASE BETA
     Indication: LIPIDOSIS
     Dosage: 35 MG VIAL
     Route: 042
     Dates: start: 20140403
  9. LIPITOR [Concomitant]
     Active Substance: ATORVASTATIN CALCIUM
  10. HEPARIN [Concomitant]
     Active Substance: HEPARIN SODIUM
  11. CETIRIZINE [Concomitant]
     Active Substance: CETIRIZINE HYDROCHLORIDE
  12. PRILOSEC [Concomitant]
     Active Substance: OMEPRAZOLE MAGNESIUM
  13. TIKOSYN [Concomitant]
     Active Substance: DOFETILIDE

REACTIONS (2)
  - Productive cough [Unknown]
  - Upper respiratory tract infection [Unknown]
